FAERS Safety Report 25426188 (Version 2)
Quarter: 2025Q3

REPORT INFORMATION
  Report Type: Report from Study
  Country: US (occurrence: US)
  Receive Date: 20250612
  Receipt Date: 20250711
  Transmission Date: 20251020
  Serious: Yes (Other)
  Sender: EMD SERONO INC
  Company Number: US-Merck Healthcare KGaA-2025028846

PATIENT
  Age: 71 Year
  Sex: Female

DRUGS (3)
  1. TEPMETKO [Suspect]
     Active Substance: TEPOTINIB HYDROCHLORIDE
     Indication: Lung cancer metastatic
     Dosage: 450MG ORAL QD AT 9PM WITH FOOD.
     Dates: start: 20250228
  2. VITAMIN D3 [Concomitant]
     Active Substance: CHOLECALCIFEROL
     Indication: Product used for unknown indication
  3. BIOTIN [Concomitant]
     Active Substance: BIOTIN
     Indication: Product used for unknown indication

REACTIONS (10)
  - Neuropathy peripheral [Not Recovered/Not Resolved]
  - Dry mouth [Unknown]
  - Constipation [Unknown]
  - Back pain [Unknown]
  - Insomnia [Unknown]
  - Oedema [Unknown]
  - Peripheral swelling [Recovered/Resolved]
  - Nausea [Recovered/Resolved]
  - Fatigue [Recovering/Resolving]
  - Dyspnoea [Recovering/Resolving]
